FAERS Safety Report 17375440 (Version 2)
Quarter: 2020Q3

REPORT INFORMATION
  Report Type: Report from Study
  Country: FR (occurrence: FR)
  Receive Date: 20200205
  Receipt Date: 20200831
  Transmission Date: 20201102
  Serious: Yes (Hospitalization)
  Sender: FDA-Public Use
  Company Number: FR-AMGEN-FRACT2020014715

PATIENT
  Age: 52 Year
  Sex: Male
  Weight: 69 kg

DRUGS (14)
  1. FLUOROURACILE [Suspect]
     Active Substance: FLUOROURACIL
     Indication: COLORECTAL CANCER
     Dosage: 748 MILLIGRAM
     Route: 042
     Dates: start: 20191211
  2. PARACETAMOL [Concomitant]
     Active Substance: ACETAMINOPHEN
     Indication: PAIN
     Dosage: UNK
     Route: 048
     Dates: start: 20200106
  3. DIPROLENE [Concomitant]
     Active Substance: BETAMETHASONE DIPROPIONATE
     Indication: RASH
     Dosage: 1 APPLICATION, AS NECESSARY
     Dates: start: 20200106
  4. PREDNISOLONE. [Concomitant]
     Active Substance: PREDNISOLONE
     Indication: PAIN
     Dosage: 20 MILLIGRAM
     Route: 048
     Dates: start: 20191211
  5. LAROXYL [Concomitant]
     Active Substance: AMITRIPTYLINE HYDROCHLORIDE
     Indication: PAIN
     Dosage: 15 GOUTTES
     Route: 048
     Dates: start: 20200106
  6. RAMIPRIL. [Concomitant]
     Active Substance: RAMIPRIL
  7. IRINOTECAN [Suspect]
     Active Substance: IRINOTECAN
     Indication: COLORECTAL CANCER
     Dosage: 280.5 MILLIGRAM
     Route: 042
     Dates: start: 20191211
  8. FLUOROURACILE [Suspect]
     Active Substance: FLUOROURACIL
     Dosage: 4464 MILLIGRAM
     Route: 042
     Dates: start: 20200106
  9. LEVOFOLINATE DE CALCIUM [Suspect]
     Active Substance: LEVOLEUCOVORIN CALCIUM
     Indication: COLORECTAL CANCER
     Dosage: 374 MILLIGRAM
     Route: 042
     Dates: start: 20191211
  10. DOXYCYCLINE. [Concomitant]
     Active Substance: DOXYCYCLINE
     Indication: RASH
     Dosage: 100 MILLIGRAM
     Route: 048
     Dates: start: 20200106
  11. PANITUMUMAB [Suspect]
     Active Substance: PANITUMUMAB
     Indication: COLORECTAL CANCER
     Dosage: 414 MILLIGRAM
     Route: 042
     Dates: start: 20191211
  12. CODOLIPRANE [Concomitant]
     Active Substance: ACETAMINOPHEN\CODEINE PHOSPHATE
     Indication: PAIN
     Dosage: 400 MILLIGRAM
     Route: 048
     Dates: start: 20191211, end: 20200106
  13. OXALIPLATINE [Suspect]
     Active Substance: OXALIPLATIN
     Indication: COLORECTAL CANCER
     Dosage: 159 MILLIGRAM
     Route: 042
     Dates: start: 20191211
  14. OXSYNIA [Concomitant]
     Indication: PAIN
     Dosage: 10 MILLIGRAM
     Route: 048
     Dates: start: 20200106

REACTIONS (2)
  - Abdominal pain [Recovered/Resolved]
  - Gastrointestinal stoma complication [Recovered/Resolved]

NARRATIVE: CASE EVENT DATE: 20200120
